FAERS Safety Report 8431474-7 (Version None)
Quarter: 2012Q2

REPORT INFORMATION
  Report Type: 
  Country: None (occurrence: None)
  Receive Date: 20120613
  Receipt Date: 20120605
  Transmission Date: 20120825
  Serious: Yes (Hospitalization)
  Sender: FDA-Public Use
  Company Number: US-BAYER-2012-056846

PATIENT
  Age: 20 Year
  Sex: Female
  Weight: 57 kg

DRUGS (8)
  1. TRAMADOL HCL [Concomitant]
     Indication: PAIN
     Dosage: 50 MG, QD
     Route: 048
     Dates: start: 20080817
  2. TRAMADOL HCL [Concomitant]
     Dosage: UNK, Q4HR, AS NEEDED
  3. CYCLOBENZAPRINE [Concomitant]
     Dosage: 10 MG, QD
     Route: 048
     Dates: start: 20080817
  4. YAZ [Suspect]
     Indication: MENSTRUATION IRREGULAR
  5. FLEXERIL [Concomitant]
     Dosage: 10 MG, UNK
  6. IBUPROFEN [Concomitant]
     Indication: HEADACHE
  7. YAZ [Suspect]
     Indication: CONTRACEPTION
     Dosage: UNK
  8. EXTRA STRENGTH TYLENOL [Concomitant]

REACTIONS (2)
  - PULMONARY INFARCTION [None]
  - PULMONARY EMBOLISM [None]
